FAERS Safety Report 6220841-8 (Version None)
Quarter: 2009Q2

REPORT INFORMATION
  Report Type: 
  Country: None (occurrence: None)
  Receive Date: 20090610
  Receipt Date: 20090601
  Transmission Date: 20091009
  Serious: Yes (Other)
  Sender: FDA-Public Use
  Company Number: JP-PFIZER INC-2009222813

PATIENT
  Age: 77 Year

DRUGS (6)
  1. SUNITINIB MALATE [Suspect]
     Indication: RENAL CELL CARCINOMA
     Dosage: 50 MG, 1X/DAY
     Route: 048
     Dates: start: 20090415
  2. NORVASC [Concomitant]
     Dosage: UNK
     Route: 048
  3. BLOPRESS [Concomitant]
     Dosage: UNK
     Route: 048
  4. NATRIX [Concomitant]
     Dates: end: 20090528
  5. AMARYL [Concomitant]
     Route: 048
     Dates: start: 20090415
  6. WARFARIN [Concomitant]
     Dosage: UNK
     Route: 048

REACTIONS (1)
  - PROTHROMBIN TIME PROLONGED [None]
